FAERS Safety Report 22946244 (Version 2)
Quarter: 2023Q4

REPORT INFORMATION
  Report Type: Report from Study
  Country: BR (occurrence: BR)
  Receive Date: 20230915
  Receipt Date: 20231030
  Transmission Date: 20240110
  Serious: Yes (Other)
  Sender: FDA-Public Use
  Company Number: BR-Merck Healthcare KGaA-2023473549

PATIENT
  Age: 21 Year
  Sex: Female

DRUGS (2)
  1. INTERFERON BETA-1A [Suspect]
     Active Substance: INTERFERON BETA-1A
     Indication: Multiple sclerosis
     Route: 058
     Dates: start: 20230719
  2. INTERFERON BETA-1A [Suspect]
     Active Substance: INTERFERON BETA-1A
     Route: 058
     Dates: start: 20230906

REACTIONS (8)
  - Abnormal loss of weight [Recovered/Resolved]
  - Blood iron decreased [Unknown]
  - Decreased appetite [Recovering/Resolving]
  - Malaise [Recovering/Resolving]
  - Aphthous ulcer [Recovering/Resolving]
  - Decreased immune responsiveness [Recovering/Resolving]
  - Anaemia [Unknown]
  - Pharyngitis [Recovering/Resolving]

NARRATIVE: CASE EVENT DATE: 20231012
